FAERS Safety Report 5069841-4 (Version None)
Quarter: 2006Q3

REPORT INFORMATION
  Report Type: 
  Country: None (occurrence: None)
  Receive Date: 20060802
  Receipt Date: 20060802
  Transmission Date: 20061208
  Serious: Yes (Hospitalization)
  Sender: FDA-Public Use
  Company Number: None

PATIENT
  Age: 52 Year
  Sex: Male
  Weight: 48.0813 kg

DRUGS (2)
  1. FUROSEMIDE [Suspect]
     Dosage: PTA
  2. SPIRONOLACTONE [Suspect]
     Dosage: QHS
     Dates: start: 20060213

REACTIONS (6)
  - CARDIAC OUTPUT DECREASED [None]
  - CONFUSIONAL STATE [None]
  - MALAISE [None]
  - NAUSEA [None]
  - RENAL FAILURE ACUTE [None]
  - VOMITING [None]
